FAERS Safety Report 9998895 (Version 1)
Quarter: 2014Q1

REPORT INFORMATION
  Report Type: Report from Study
  Country: CA (occurrence: CA)
  Receive Date: 20140312
  Receipt Date: 20140312
  Transmission Date: 20141002
  Serious: Yes (Hospitalization)
  Sender: FDA-Public Use
  Company Number: CA-BRISTOL-MYERS SQUIBB COMPANY-20354601

PATIENT
  Age: 71 Year
  Sex: Male

DRUGS (5)
  1. ORENCIA [Suspect]
     Indication: RHEUMATOID ARTHRITIS
     Dosage: 1 DF=500 UNITS NOS
     Route: 042
     Dates: start: 20090121
  2. METHOTREXATE [Concomitant]
  3. LIPITOR [Concomitant]
  4. ALTACE [Concomitant]
  5. ASAPHEN [Concomitant]

REACTIONS (1)
  - Chest pain [Unknown]
